FAERS Safety Report 8782189 (Version 3)
Quarter: 2012Q4

REPORT INFORMATION
  Report Type: Report from Study
  Country: US (occurrence: US)
  Receive Date: 20120913
  Receipt Date: 20121009
  Transmission Date: 20130627
  Serious: No
  Sender: FDA-Public Use
  Company Number: US-VERTEX PHARMACEUTICAL INC.-AE-2012-009566

PATIENT
  Age: 47 Year
  Sex: Female
  Weight: 91 kg

DRUGS (6)
  1. VX-950 [Suspect]
     Indication: HEPATITIS C
     Dosage: 750 mg, tid
     Route: 048
  2. PEGASYS [Suspect]
     Indication: HEPATITIS C
     Dosage: 180 ?g, UNK
  3. RIBAVIRIN [Suspect]
     Indication: HEPATITIS C
     Dosage: 600mg in am, 400 mg in pm
  4. TOPAMAX [Concomitant]
  5. METOPROLOL [Concomitant]
  6. ASPIRIN [Concomitant]

REACTIONS (12)
  - Blood pressure increased [Unknown]
  - Muscular weakness [Recovered/Resolved]
  - Decreased appetite [Unknown]
  - Cough [Unknown]
  - Dry mouth [Unknown]
  - Injection site swelling [Unknown]
  - Anaemia [Unknown]
  - Anorectal discomfort [Unknown]
  - Pruritus [Unknown]
  - Dysgeusia [Unknown]
  - Rash [Recovered/Resolved]
  - Urticaria [Unknown]
